FAERS Safety Report 9272069 (Version 1)
Quarter: 2013Q2

REPORT INFORMATION
  Report Type: Spontaneous
  Country: US (occurrence: US)
  Receive Date: 20130506
  Receipt Date: 20130506
  Transmission Date: 20140414
  Serious: No
  Sender: FDA-Public Use
  Company Number: US-TEVA-402375USA

PATIENT
  Sex: Female
  Weight: 49.49 kg

DRUGS (7)
  1. PROAIR HFA [Suspect]
     Indication: CHRONIC OBSTRUCTIVE PULMONARY DISEASE
     Dosage: 2 PUFFS
  2. PROAIR HFA [Suspect]
     Indication: EMPHYSEMA
  3. CILOSTAZOL [Concomitant]
     Indication: PERIPHERAL ISCHAEMIA
     Dosage: 100 MILLIGRAM DAILY;
     Route: 048
  4. PREVASTATIN [Concomitant]
     Indication: HYPERCHOLESTEROLAEMIA
     Dosage: 20 MILLIGRAM DAILY;
     Route: 048
  5. FUROSEMIDE [Concomitant]
     Dosage: 40 MILLIGRAM DAILY;
     Route: 048
  6. MULTIPLE VITAMINS [Concomitant]
     Indication: MEDICAL DIET
     Route: 048
  7. ASPIRIN [Concomitant]
     Indication: ANTICOAGULANT THERAPY
     Route: 048

REACTIONS (2)
  - Somnolence [Not Recovered/Not Resolved]
  - Feeling cold [Unknown]
